FAERS Safety Report 6816937-X (Version None)
Quarter: 2010Q3

REPORT INFORMATION
  Report Type: 
  Country: None (occurrence: None)
  Receive Date: 20100706
  Receipt Date: 20100701
  Transmission Date: 20110219
  Serious: Yes (Hospitalization)
  Sender: FDA-Public Use
  Company Number: US-BRISTOL-MYERS SQUIBB COMPANY-15175763

PATIENT
  Age: 60 Year
  Sex: Male
  Weight: 45 kg

DRUGS (4)
  1. ERBITUX [Suspect]
     Indication: NON-SMALL CELL LUNG CANCER
     Dosage: 24MG INFUSION OF LOADING DOSE ON 01APR10
     Dates: start: 20100401, end: 20100401
  2. TAXOL [Suspect]
     Indication: NON-SMALL CELL LUNG CANCER
     Dates: start: 20100415, end: 20100510
  3. CARBOPLATIN [Suspect]
     Indication: NON-SMALL CELL LUNG CANCER
     Dates: start: 20100415, end: 20100510
  4. RADIATION THERAPY [Suspect]
     Indication: NON-SMALL CELL LUNG CANCER
     Dosage: 1 DOSAGE FORM=6000CGY .NUMBER OF FRACTIONS 30, NUMBER OF ELASPSED DAYS 43.
     Dates: start: 20100401, end: 20100525

REACTIONS (4)
  - DYSPHAGIA [None]
  - FATIGUE [None]
  - HYPOTENSION [None]
  - PNEUMONIA [None]
